FAERS Safety Report 11246532 (Version 1)
Quarter: 2015Q3

REPORT INFORMATION
  Report Type: Spontaneous
  Country: US (occurrence: None)
  Receive Date: 20150706
  Receipt Date: 20150706
  Transmission Date: 20151125
  Serious: Yes (Hospitalization)
  Sender: FDA-Public Use
  Company Number: IPC201506-000424

PATIENT
  Age: 67 Year
  Sex: Female

DRUGS (9)
  1. CAFFEINE (CAFFEINE) [Suspect]
     Active Substance: CAFFEINE
  2. OXYCODONE (OXYCODONE) (OXYCODONE) [Suspect]
     Active Substance: OXYCODONE
  3. TRAMADOL (TRAMADOL) (TRAMADOL) [Suspect]
     Active Substance: TRAMADOL
  4. IBUPROFEN (IBUPROFEN) (IBUPROFEN) [Suspect]
     Active Substance: IBUPROFEN
  5. BUSPIRONE [Suspect]
     Active Substance: BUSPIRONE HYDROCHLORIDE
  6. PARACETAMOL (ACETAMINOPHEN) [Suspect]
     Active Substance: ACETAMINOPHEN
  7. TOPIRAMATE (TOPIRAMATE) (TOPIRAMATE) [Suspect]
     Active Substance: TOPIRAMATE
  8. DIPHENHYDRAMINE (DIPHENHYDRAMINE) (DIPHENHYDRAMINE) [Suspect]
     Active Substance: DIPHENHYDRAMINE
  9. FLURAZEPAM (FLURAZEPAM) [Suspect]
     Active Substance: FLURAZEPAM HYDROCHLORIDE

REACTIONS (5)
  - Cerebellar infarction [None]
  - Brain injury [None]
  - Overdose [None]
  - Coma [None]
  - Cerebral hypoperfusion [None]
